FAERS Safety Report 6113120-0 (Version None)
Quarter: 2009Q1

REPORT INFORMATION
  Report Type: 
  Country: None (occurrence: None)
  Receive Date: 20090312
  Receipt Date: 20090306
  Transmission Date: 20090719
  Serious: Yes (Hospitalization)
  Sender: FDA-Public Use
  Company Number: US-MERCK-0903USA01118

PATIENT
  Age: 63 Year
  Sex: Male

DRUGS (17)
  1. JANUVIA [Suspect]
     Indication: DIABETES MELLITUS
     Route: 048
     Dates: start: 20090204, end: 20090226
  2. LIPITOR [Concomitant]
     Route: 065
  3. TRICOR [Concomitant]
     Route: 065
  4. ZETIA [Concomitant]
     Route: 048
  5. ALLOPURINOL [Concomitant]
     Route: 065
  6. ATENOLOL [Concomitant]
     Route: 065
  7. GLIPIZIDE [Concomitant]
     Route: 065
  8. LOVAZA [Concomitant]
     Route: 065
  9. NEXIUM [Concomitant]
     Route: 065
  10. QUINAPRIL HYDROCHLORIDE [Concomitant]
     Route: 065
  11. ASPIRIN [Concomitant]
     Route: 065
  12. ACETAMINOPHEN [Concomitant]
     Route: 065
  13. CALCIUM (UNSPECIFIED) [Concomitant]
     Route: 065
  14. VITAMIN D (UNSPECIFIED) [Concomitant]
     Route: 065
  15. FLOMAX (MORNIFLUMATE) [Concomitant]
     Route: 065
  16. LANTUS [Concomitant]
     Route: 065
  17. ISOSORBIDE [Concomitant]
     Route: 065

REACTIONS (5)
  - ALANINE AMINOTRANSFERASE INCREASED [None]
  - ASPARTATE AMINOTRANSFERASE INCREASED [None]
  - CARDIAC ENZYMES INCREASED [None]
  - HEPATIC FUNCTION ABNORMAL [None]
  - PLATELET COUNT DECREASED [None]
